FAERS Safety Report 9239928 (Version 4)
Quarter: 2013Q2

REPORT INFORMATION
  Report Type: Report from Study
  Country: AU (occurrence: AU)
  Receive Date: 20130418
  Receipt Date: 20130606
  Transmission Date: 20140414
  Serious: Yes (Other)
  Sender: FDA-Public Use
  Company Number: AU-ASTRAZENECA-2013SE21877

PATIENT
  Age: 707 Month
  Sex: Female

DRUGS (7)
  1. ARIMIDEX [Suspect]
     Indication: BREAST CANCER FEMALE
     Route: 048
     Dates: start: 201209
  2. OSTELIN [Concomitant]
     Indication: OSTEOPENIA
     Dosage: OSTELIN
  3. OSTELIN [Concomitant]
     Indication: OSTEOPENIA
     Dosage: VITAMIN D
     Route: 048
  4. NAPROSYN [Concomitant]
     Indication: PAIN
     Dosage: UNKNOWN DOSE AS NEEDED
     Route: 048
  5. VENTOLIN INHALER [Concomitant]
     Dosage: UNKNOWN DOSE AS NEEDED
     Route: 055
  6. CALCIUM [Concomitant]
     Indication: OSTEOPENIA
     Route: 048
  7. VITAMIN D [Concomitant]
     Indication: OSTEOPENIA
     Route: 048

REACTIONS (5)
  - Rib fracture [Not Recovered/Not Resolved]
  - Bone disorder [Recovering/Resolving]
  - Pathological fracture [Unknown]
  - Chest pain [Unknown]
  - Pain [Unknown]
